FAERS Safety Report 4919512-7 (Version None)
Quarter: 2006Q1

REPORT INFORMATION
  Report Type: 
  Country: None (occurrence: None)
  Receive Date: 20060222
  Receipt Date: 20050114
  Transmission Date: 20060701
  Serious: Yes (Hospitalization)
  Sender: FDA-Public Use
  Company Number: US-MERCK-0501USA03314

PATIENT
  Age: 60 Year
  Sex: Female
  Weight: 84 kg

DRUGS (1)
  1. VIOXX [Suspect]
     Indication: ARTHRALGIA
     Route: 048
     Dates: start: 20011101, end: 20040301

REACTIONS (5)
  - BACK PAIN [None]
  - CYST REMOVAL [None]
  - KNEE ARTHROPLASTY [None]
  - THROMBOSIS [None]
  - THYROIDECTOMY [None]
